FAERS Safety Report 25082731 (Version 1)
Quarter: 2025Q1

REPORT INFORMATION
  Report Type: Spontaneous
  Country: CN (occurrence: CN)
  Receive Date: 20250317
  Receipt Date: 20250317
  Transmission Date: 20250409
  Serious: Yes (Life-Threatening, Hospitalization, Other)
  Sender: Steriscience PTE
  Company Number: CN-STERISCIENCE B.V.-2025-ST-000453

PATIENT
  Age: 64 Year
  Sex: Male

DRUGS (14)
  1. PIPERACILLIN SODIUM\TAZOBACTAM SODIUM [Suspect]
     Active Substance: PIPERACILLIN SODIUM\TAZOBACTAM SODIUM
     Indication: COVID-19
     Dosage: 4.5 GRAM, Q8H, DRIP; SIX-DAY COURSE
     Route: 042
  2. MEROPENEM [Suspect]
     Active Substance: MEROPENEM
     Indication: Acinetobacter infection
     Dosage: 1 GRAM, Q8H, DRIP
     Route: 042
  3. GANCICLOVIR SODIUM [Suspect]
     Active Substance: GANCICLOVIR SODIUM
     Indication: Herpes virus infection
     Route: 065
  4. GANCICLOVIR SODIUM [Suspect]
     Active Substance: GANCICLOVIR SODIUM
     Indication: Alphaviral infection
  5. GANCICLOVIR SODIUM [Suspect]
     Active Substance: GANCICLOVIR SODIUM
     Indication: Human herpesvirus 6 infection
  6. GANCICLOVIR SODIUM [Suspect]
     Active Substance: GANCICLOVIR SODIUM
     Indication: Human herpesvirus 7 infection
  7. NIRMATRELVIR\RITONAVIR [Suspect]
     Active Substance: NIRMATRELVIR\RITONAVIR
     Indication: COVID-19
     Route: 065
  8. METHYLPREDNISOLONE [Suspect]
     Active Substance: METHYLPREDNISOLONE
     Indication: COVID-19
     Route: 042
  9. LEVOFLOXACIN [Suspect]
     Active Substance: LEVOFLOXACIN
     Indication: COVID-19
     Route: 042
  10. TIGECYCLINE [Suspect]
     Active Substance: TIGECYCLINE
     Indication: Acinetobacter infection
     Route: 042
  11. TIGECYCLINE [Suspect]
     Active Substance: TIGECYCLINE
     Route: 042
  12. CEFOPERAZONE SODIUM\SULBACTAM SODIUM [Suspect]
     Active Substance: CEFOPERAZONE SODIUM\SULBACTAM SODIUM
     Indication: Acinetobacter infection
     Dosage: 3 GRAM, Q8H, DRIP
     Route: 042
  13. HEPARIN-CALCIUM [Concomitant]
     Active Substance: HEPARIN CALCIUM
     Indication: Anticoagulant therapy
  14. LENVATINIB [Concomitant]
     Active Substance: LENVATINIB
     Indication: Hepatocellular carcinoma
     Route: 065

REACTIONS (4)
  - Condition aggravated [Unknown]
  - Drug ineffective for unapproved indication [Unknown]
  - Drug ineffective [Unknown]
  - Off label use [Unknown]
